FAERS Safety Report 21900569 (Version 1)
Quarter: 2023Q1

REPORT INFORMATION
  Report Type: Spontaneous
  Country: US (occurrence: US)
  Receive Date: 20230123
  Receipt Date: 20230123
  Transmission Date: 20230417
  Serious: No
  Sender: FDA-Public Use
  Company Number: US-NOVOPROD-970040

PATIENT
  Age: 85 Year

DRUGS (2)
  1. OZEMPIC [Suspect]
     Active Substance: SEMAGLUTIDE
     Indication: Type 2 diabetes mellitus
     Dosage: 0.25MG
     Route: 058
     Dates: start: 202207, end: 20220816
  2. ALOGLIPTIN [Concomitant]
     Active Substance: ALOGLIPTIN
     Indication: Type 2 diabetes mellitus
     Dosage: UNK

REACTIONS (5)
  - Nervousness [Unknown]
  - Weight decreased [Unknown]
  - Abdominal distension [Unknown]
  - Decreased appetite [Unknown]
  - Heart rate increased [Unknown]
